FAERS Safety Report 20624674 (Version 1)
Quarter: 2022Q1

REPORT INFORMATION
  Report Type: Spontaneous
  Country: CN (occurrence: CN)
  Receive Date: 20220323
  Receipt Date: 20220323
  Transmission Date: 20220423
  Serious: Yes (Hospitalization, Other)
  Sender: FDA-Public Use
  Company Number: CN-ABBVIE-22K-035-4321046-00

PATIENT
  Age: 53 Year
  Sex: Female
  Weight: 66 kg

DRUGS (9)
  1. VALPROATE SODIUM [Suspect]
     Active Substance: VALPROATE SODIUM
     Indication: Mania
     Route: 048
     Dates: start: 20200529, end: 20200623
  2. VALPROATE SODIUM [Suspect]
     Active Substance: VALPROATE SODIUM
     Indication: Antipsychotic therapy
     Route: 048
     Dates: end: 20200703
  3. LORAZEPAM [Concomitant]
     Active Substance: LORAZEPAM
     Indication: Sleep disorder therapy
     Dosage: EVERY NIGHT
     Route: 048
     Dates: start: 20200605, end: 20200612
  4. OLANZAPINE [Concomitant]
     Active Substance: OLANZAPINE
     Indication: Mental disorder
     Dosage: EVERY NIGHT
     Route: 048
     Dates: start: 20200529, end: 20200616
  5. OLANZAPINE [Concomitant]
     Active Substance: OLANZAPINE
     Indication: Antipsychotic therapy
  6. ADALAT [Concomitant]
     Active Substance: NIFEDIPINE
     Indication: Product used for unknown indication
     Dates: start: 20200529, end: 20200705
  7. ER TONG SHU [Concomitant]
     Indication: Gout
     Dates: start: 20200529, end: 20200705
  8. SUO LE [Concomitant]
     Indication: Product used for unknown indication
     Dates: start: 20200612
  9. NIFEDIPINE [Concomitant]
     Active Substance: NIFEDIPINE
     Indication: Cardiovascular event prophylaxis
     Dosage: BAI XIN TONG
     Route: 048

REACTIONS (1)
  - Neutrophil count decreased [Recovering/Resolving]

NARRATIVE: CASE EVENT DATE: 20200616
